FAERS Safety Report 12458235 (Version 1)
Quarter: 2016Q2

REPORT INFORMATION
  Report Type: Spontaneous
  Country: AU (occurrence: AU)
  Receive Date: 20160613
  Receipt Date: 20160613
  Transmission Date: 20160815
  Serious: Yes (Hospitalization)
  Sender: FDA-Public Use
  Company Number: AU-IPSEN BIOPHARMACEUTICALS, INC.-2016-00092

PATIENT
  Sex: Male

DRUGS (2)
  1. DYSPORT [Suspect]
     Active Substance: ABOBOTULINUMTOXINA
     Indication: SCIATICA
     Dosage: 1000 UNITS
     Route: 065
     Dates: start: 2015, end: 2015
  2. DYSPORT [Suspect]
     Active Substance: ABOBOTULINUMTOXINA
     Indication: PRODUCT USE ISSUE

REACTIONS (5)
  - Hypoglycaemia [Recovering/Resolving]
  - Therapeutic response unexpected [Unknown]
  - Oligodipsia [Recovering/Resolving]
  - Neuromuscular toxicity [Recovering/Resolving]
  - Decreased appetite [Recovering/Resolving]

NARRATIVE: CASE EVENT DATE: 2015
